FAERS Safety Report 12704851 (Version 2)
Quarter: 2017Q2

REPORT INFORMATION
  Report Type: Report from Study
  Country: None (occurrence: CN)
  Receive Date: 20160831
  Receipt Date: 20170627
  Transmission Date: 20170830
  Serious: Yes (Death, Other)
  Sender: FDA-Public Use
  Company Number: CN-ABBVIE-16K-035-1647280-00

PATIENT
  Age: 75 Year
  Sex: Female

DRUGS (4)
  1. HYDROXYCHLOROQUINE [Concomitant]
     Active Substance: HYDROXYCHLOROQUINE
     Indication: RHEUMATOID ARTHRITIS
     Route: 048
     Dates: start: 20150601
  2. TOTAL GLUCOSIDES OF PAEONY [Concomitant]
     Indication: RHEUMATOID ARTHRITIS
     Route: 048
     Dates: start: 20150601
  3. HUMIRA [Suspect]
     Active Substance: ADALIMUMAB
     Indication: RHEUMATOID ARTHRITIS
     Route: 058
     Dates: start: 20150623, end: 20160501
  4. TRIPTERYGIUM WILFORDII [Concomitant]
     Indication: RHEUMATOID ARTHRITIS
     Route: 048
     Dates: start: 20150601

REACTIONS (3)
  - Haematuria [Unknown]
  - Haematuria [Recovered/Resolved]
  - Bladder neoplasm [Fatal]

NARRATIVE: CASE EVENT DATE: 20160516
